FAERS Safety Report 5579520-2 (Version None)
Quarter: 2008Q1

REPORT INFORMATION
  Report Type: 
  Country: None (occurrence: None)
  Receive Date: 20080102
  Receipt Date: 20071218
  Transmission Date: 20080703
  Serious: Yes (Hospitalization)
  Sender: FDA-Public Use
  Company Number: US-AMGEN-US257496

PATIENT
  Sex: Female

DRUGS (4)
  1. PROCRIT [Suspect]
     Indication: ANAEMIA OF MALIGNANT DISEASE
     Route: 058
     Dates: start: 20071023, end: 20071126
  2. RANITIDINE HCL [Concomitant]
     Route: 065
     Dates: start: 20071117
  3. BENADRYL [Concomitant]
     Route: 065
     Dates: start: 20071117
  4. MEDROL [Concomitant]
     Route: 065
     Dates: start: 20071117

REACTIONS (3)
  - ERYTHEMA [None]
  - OEDEMA PERIPHERAL [None]
  - STEVENS-JOHNSON SYNDROME [None]
